FAERS Safety Report 8525861-6 (Version None)
Quarter: 2012Q3

REPORT INFORMATION
  Report Type: 
  Country: None (occurrence: None)
  Receive Date: 20120720
  Receipt Date: 20120718
  Transmission Date: 20120928
  Serious: Yes (Hospitalization)
  Sender: FDA-Public Use
  Company Number: DE-ELI_LILLY_AND_COMPANY-DE201207005774

PATIENT
  Age: 84 Year
  Sex: Male

DRUGS (8)
  1. LEVETIRACETAM [Concomitant]
     Dosage: UNK, UNKNOWN
     Route: 065
  2. FORTEO [Suspect]
     Indication: OSTEOPOROSIS
     Dosage: UNK, QD
     Route: 058
     Dates: start: 20120716
  3. ASPIRIN [Concomitant]
     Dosage: UNK, UNKNOWN
     Route: 065
  4. CALCIUM D3 [Concomitant]
     Dosage: UNK, UNKNOWN
     Route: 065
  5. SIMVASTATIN [Concomitant]
     Dosage: UNK, UNKNOWN
     Route: 065
  6. NOVORAPID [Concomitant]
     Dosage: UNK, UNKNOWN
     Route: 065
  7. FENTANYL [Concomitant]
  8. LANTUS [Concomitant]
     Dosage: UNK, UNKNOWN
     Route: 065

REACTIONS (1)
  - MOBILITY DECREASED [None]
